FAERS Safety Report 9267854 (Version 1)
Quarter: 2013Q2

REPORT INFORMATION
  Report Type: Report from Study
  Country: US (occurrence: US)
  Receive Date: 20130502
  Receipt Date: 20130502
  Transmission Date: 20140414
  Serious: Yes (Hospitalization)
  Sender: FDA-Public Use
  Company Number: US-ALEXION-A201201187

PATIENT
  Age: 25 Year
  Sex: Male

DRUGS (8)
  1. SOLIRIS [Suspect]
     Indication: HAEMOLYTIC URAEMIC SYNDROME
     Dosage: 900 MG, UNK
     Route: 042
     Dates: start: 20120604
  2. DIOVAN [Concomitant]
     Indication: HYPERTENSION
     Dosage: 80 MG, QD
     Route: 048
  3. AMLODIPINE [Concomitant]
     Indication: HYPERTENSION
     Dosage: 10 MG, QD
     Route: 048
  4. CARVEDILOL [Concomitant]
     Indication: HYPERTENSION
     Dosage: 25 MG, QD
     Route: 048
  5. HYDRALAZINE [Concomitant]
     Indication: HYPERTENSION
     Dosage: 25 MG, QD
     Route: 048
  6. AMBIEN [Concomitant]
     Dosage: 5 MG, PRN
     Route: 048
  7. RENAGEL [Concomitant]
     Dosage: 1600 MG, WITH MEALS
     Route: 048
  8. BUMETANIDE [Concomitant]
     Dosage: 2 MG, QD
     Route: 048

REACTIONS (1)
  - Kidney transplant rejection [Unknown]
